FAERS Safety Report 10029541 (Version 1)
Quarter: 2014Q1

REPORT INFORMATION
  Report Type: Spontaneous
  Country: US (occurrence: None)
  Receive Date: 20140320
  Receipt Date: 20140320
  Transmission Date: 20141002
  Serious: Yes (Life-Threatening, Other)
  Sender: FDA-Public Use
  Company Number: None

PATIENT
  Age: 36 Year
  Sex: Female
  Weight: 58.97 kg

DRUGS (4)
  1. BUPROPION [Suspect]
     Dosage: 1 PILL ONCE DAILY
     Route: 048
  2. BUPROPION [Suspect]
     Indication: DEPRESSION
     Dosage: 1 PILL ONCE DAILY
     Route: 048
  3. BUPROPION [Suspect]
     Indication: FIBROMYALGIA
     Dosage: 1 PILL ONCE DAILY
     Route: 048
  4. BUPROPION [Suspect]
     Indication: MIGRAINE
     Dosage: 1 PILL ONCE DAILY
     Route: 048

REACTIONS (5)
  - Fibromyalgia [None]
  - Migraine [None]
  - Fatigue [None]
  - Product substitution issue [None]
  - Condition aggravated [None]
